FAERS Safety Report 24858760 (Version 1)
Quarter: 2025Q1

REPORT INFORMATION
  Report Type: Spontaneous
  Country: US (occurrence: US)
  Receive Date: 20250118
  Receipt Date: 20250118
  Transmission Date: 20250409
  Serious: No
  Sender: AUROBINDO
  Company Number: US-AUROBINDO-AUR-APL-2024-037000

PATIENT
  Age: 37 Year
  Sex: Female
  Weight: 70.3 kg

DRUGS (1)
  1. LEVONORGESTREL [Suspect]
     Active Substance: LEVONORGESTREL
     Indication: Pregnancy on contraceptive
     Route: 048
     Dates: start: 20240615

REACTIONS (2)
  - Amenorrhoea [Unknown]
  - Product substitution issue [Unknown]
